FAERS Safety Report 9238187 (Version 1)
Quarter: 2013Q2

REPORT INFORMATION
  Report Type: Spontaneous
  Country: FR (occurrence: None)
  Receive Date: 20130416
  Receipt Date: 20130416
  Transmission Date: 20140414
  Serious: Yes (Death, Hospitalization)
  Sender: FDA-Public Use
  Company Number: FK201301170

PATIENT
  Age: 55 Year
  Sex: Male

DRUGS (5)
  1. PACLITAXEL [Suspect]
     Indication: PRODUCT USED FOR UNKNOWN INDICATION
     Route: 042
  2. TAXOTERE [Suspect]
     Indication: PRODUCT USED FOR UNKNOWN INDICATION
     Dates: start: 20130204, end: 20130204
  3. CARBOPLATIN (CARBOPLATIN) [Concomitant]
  4. NEO-CODION (NEO-CO-DION /01425301/) [Concomitant]
  5. EPREX (EPOETIN ALFA) [Concomitant]

REACTIONS (4)
  - Histiocytosis haematophagic [None]
  - Anaphylactic reaction [None]
  - White blood cell count increased [None]
  - Platelet count increased [None]
